FAERS Safety Report 5256874-8 (Version None)
Quarter: 2007Q1

REPORT INFORMATION
  Report Type: 
  Country: None (occurrence: None)
  Receive Date: 20070306
  Receipt Date: 20070226
  Transmission Date: 20070707
  Serious: Yes (Hospitalization, Other)
  Sender: FDA-Public Use
  Company Number: US-ELI_LILLY_AND_COMPANY-US200702005265

PATIENT
  Age: 72 Year
  Sex: Female
  Weight: 45.804 kg

DRUGS (1)
  1. FORTEO [Suspect]
     Indication: OSTEOPOROSIS
     Dates: start: 20060701

REACTIONS (8)
  - ARTHROPATHY [None]
  - GAIT DISTURBANCE [None]
  - HAEMATOMA [None]
  - JOINT EFFUSION [None]
  - JOINT SWELLING [None]
  - RED BLOOD CELL COUNT DECREASED [None]
  - WEIGHT DECREASED [None]
  - WHITE BLOOD CELL COUNT DECREASED [None]
